FAERS Safety Report 15001090 (Version 1)
Quarter: 2018Q2

REPORT INFORMATION
  Report Type: Spontaneous
  Country: US (occurrence: US)
  Receive Date: 20180523
  Receipt Date: 20180523
  Transmission Date: 20180711
  Serious: No
  Sender: FDA-Public Use
  Company Number: None

PATIENT
  Sex: Female

DRUGS (2)
  1. KLONOPIN [Suspect]
     Active Substance: CLONAZEPAM
  2. TEMAZEPAM. [Suspect]
     Active Substance: TEMAZEPAM

REACTIONS (2)
  - Insomnia [None]
  - Drug ineffective [None]
